FAERS Safety Report 14229252 (Version 2)
Quarter: 2017Q4

REPORT INFORMATION
  Report Type: Spontaneous
  Country: US (occurrence: US)
  Receive Date: 20171128
  Receipt Date: 20171206
  Transmission Date: 20180321
  Serious: No
  Sender: FDA-Public Use
  Company Number: US-PFIZER INC-2017505480

PATIENT
  Age: 57 Year
  Sex: Male
  Weight: 74.84 kg

DRUGS (2)
  1. ATROPINE SULFATE/DIPHENOXYLATE HYDROCHLORIDE [Suspect]
     Active Substance: ATROPINE SULFATE\DIPHENOXYLATE HYDROCHLORIDE
     Indication: DIARRHOEA
     Dosage: AS NEEDED (ONE IN THE MORNING, TWICE A DAY, ONE IN THE MORNING AND ONE IN THE EVENING)
     Route: 048
     Dates: start: 201707
  2. INLYTA [Concomitant]
     Active Substance: AXITINIB
     Indication: NEOPLASM
     Dosage: 5 MG, TWICE A DAY, MORNING AND EVENING, 12 HOURS APART

REACTIONS (4)
  - Abdominal pain upper [Unknown]
  - Flatulence [Unknown]
  - Product use issue [Unknown]
  - Constipation [Unknown]
